FAERS Safety Report 14093620 (Version 2)
Quarter: 2017Q4

REPORT INFORMATION
  Report Type: Spontaneous
  Country: US (occurrence: US)
  Receive Date: 20171016
  Receipt Date: 20171212
  Transmission Date: 20180321
  Serious: No
  Sender: FDA-Public Use
  Company Number: US-ASTRAZENECA-2017SF03756

PATIENT
  Sex: Female
  Weight: 78.9 kg

DRUGS (2)
  1. SYMBICORT [Suspect]
     Active Substance: BUDESONIDE\FORMOTEROL FUMARATE DIHYDRATE
     Indication: ASTHMA
     Dosage: 160/4.5MCG, TWO PUFFS, TWO TIMES A DAY
     Route: 055
     Dates: start: 2017
  2. ADVAIR HFA [Concomitant]
     Active Substance: FLUTICASONE PROPIONATE\SALMETEROL XINAFOATE

REACTIONS (9)
  - Bronchitis [Unknown]
  - Dysphonia [Unknown]
  - Drug ineffective [Unknown]
  - Product quality issue [Unknown]
  - Throat irritation [Unknown]
  - Cough [Unknown]
  - Intentional device misuse [Unknown]
  - Wheezing [Unknown]
  - Drug dose omission [Unknown]
